FAERS Safety Report 8804028 (Version 1)
Quarter: 2012Q4

REPORT INFORMATION
  Report Type: 
  Country: FR (occurrence: FR)
  Receive Date: 20120924
  Receipt Date: 20120924
  Transmission Date: 20130627
  Serious: Yes (Hospitalization)
  Sender: FDA-Public Use
  Company Number: FR-SANOFI-AVENTIS-2012SA067208

PATIENT
  Age: 91 Year
  Sex: Male

DRUGS (10)
  1. XATRAL [Suspect]
     Indication: BENIGN PROSTATIC HYPERTROPHY
     Route: 048
     Dates: start: 20090206, end: 20090211
  2. LOVENOX [Suspect]
     Indication: THROMBOSIS PROPHYLAXIS
     Route: 058
     Dates: start: 20090130, end: 20090211
  3. EQUANIL [Suspect]
     Indication: BEHAVIOR DISORDER
     Route: 048
     Dates: start: 20090206, end: 20090211
  4. ALFUZOSIN [Concomitant]
     Indication: BENIGN PROSTATIC HYPERTROPHY
     Route: 048
     Dates: end: 20090206
  5. NORSET [Concomitant]
     Route: 048
  6. ATARAX [Concomitant]
  7. TIORFAN [Concomitant]
     Indication: DIARRHEA
     Dates: start: 20090202, end: 20090204
  8. TIAPRIDAL [Concomitant]
     Dates: start: 20090204, end: 20090205
  9. SPECIAFOLDINE [Concomitant]
     Dates: start: 20090203
  10. PERFALGAN [Concomitant]
     Dates: start: 20090206

REACTIONS (6)
  - Neutropenia [Recovered/Resolved]
  - Thrombocytopenia [Recovered/Resolved]
  - Diarrhoea [None]
  - Hypotension [None]
  - Contraindication to medical treatment [None]
  - Thrombocytopenia [None]
